FAERS Safety Report 7934721-0 (Version None)
Quarter: 2011Q4

REPORT INFORMATION
  Report Type: 
  Country: None (occurrence: None)
  Receive Date: 20111122
  Receipt Date: 20111114
  Transmission Date: 20120403
  Serious: Yes (Hospitalization)
  Sender: FDA-Public Use
  Company Number: DE-TEVA-309147GER

PATIENT
  Sex: Female

DRUGS (4)
  1. OLMESARTAN MEDOXOMIL [Concomitant]
     Indication: CARDIAC DISORDER
     Dates: start: 20110101
  2. AMLODIPINE [Concomitant]
     Indication: CARDIAC DISORDER
     Dates: start: 20110101
  3. ALPRAZOLAM [Suspect]
     Indication: EMOTIONAL DISORDER
     Route: 048
     Dates: start: 20111001
  4. SOTAHEXAL [Concomitant]
     Indication: CARDIAC DISORDER

REACTIONS (1)
  - DEEP VEIN THROMBOSIS [None]
